FAERS Safety Report 13291004 (Version 2)
Quarter: 2017Q1

REPORT INFORMATION
  Report Type: Spontaneous
  Country: RU (occurrence: RU)
  Receive Date: 20170302
  Receipt Date: 20170324
  Transmission Date: 20170428
  Serious: Yes (Hospitalization)
  Sender: FDA-Public Use
  Company Number: RU-ASTRAZENECA-2017SE17485

PATIENT
  Age: 62 Year
  Sex: Female
  Weight: 52 kg

DRUGS (3)
  1. CORAXAN [Concomitant]
     Active Substance: IVABRADINE HYDROCHLORIDE
     Indication: CARDIAC DISORDER
     Dosage: 1 OR 0.5 TABLET (DEPENDED OF THE BLOOD PRESSURE) DAILY
  2. BERODUAL [Concomitant]
     Active Substance: FENOTEROL HYDROBROMIDE\IPRATROPIUM BROMIDE
     Dates: start: 20170212
  3. SYMBICORT [Suspect]
     Active Substance: BUDESONIDE\FORMOTEROL FUMARATE DIHYDRATE
     Indication: ASTHMA
     Dosage: 160/4.5 MCG, BID
     Route: 055

REACTIONS (8)
  - Erythema [Recovered/Resolved]
  - Blood pressure increased [Recovered/Resolved]
  - Tachycardia [Unknown]
  - Asthenia [Not Recovered/Not Resolved]
  - Choking [Recovered/Resolved]
  - Hypersensitivity [Recovered/Resolved]
  - Dyspnoea [Recovered/Resolved]
  - Headache [Not Recovered/Not Resolved]

NARRATIVE: CASE EVENT DATE: 20170212
